FAERS Safety Report 7755457 (Version 10)
Quarter: 2013Q2

REPORT INFORMATION
  Report Type: Report from Study
  Country: JP (occurrence: JP)
  Receive Date: 20110111
  Receipt Date: 20130514
  Transmission Date: 20140414
  Serious: Yes (Hospitalization, Other)
  Sender: FDA-Public Use
  Company Number: PHHO2010JP19714

PATIENT
  Sex: 0

DRUGS (20)
  1. CERTICAN [Suspect]
     Indication: RENAL TRANSPLANT
     Dosage: 0.75 MG, UNK
     Route: 048
     Dates: start: 20090514
  2. CERTICAN [Suspect]
     Dosage: 1.5 MG, UNK
     Route: 048
     Dates: start: 20100407
  3. NEORAL [Suspect]
     Indication: RENAL TRANSPLANT
     Dosage: 100 MG, UNK
     Route: 048
     Dates: start: 20090517
  4. NEORAL [Suspect]
     Dosage: 125 MG, UNK
     Route: 048
     Dates: start: 20101116
  5. SANDIMMUN / NEORAL/ OL 27-400/ OLO 400 [Suspect]
     Indication: RENAL TRANSPLANT
     Dosage: 2 MG, UNK
     Route: 042
     Dates: start: 20090513
  6. MEDROL [Suspect]
     Indication: RENAL TRANSPLANT
     Dosage: 4 MG, UNK
     Route: 048
     Dates: start: 20090522, end: 20101013
  7. MEDROL [Suspect]
     Dosage: 8 MG, UNK
     Route: 048
     Dates: start: 20101207
  8. PRIDOL [Concomitant]
     Indication: PROPHYLAXIS AGAINST TRANSPLANT REJECTION
     Dosage: 1000 MG, UNK
     Route: 041
     Dates: start: 20101014
  9. DIOVAN [Concomitant]
     Indication: HYPERTENSION
     Dosage: 20 MG, UNK
     Route: 048
     Dates: start: 20100701
  10. LIPITOR [Concomitant]
     Indication: HYPERLIPIDAEMIA
     Dosage: 10 MG, UNK
     Route: 048
     Dates: start: 20100607
  11. BAYASPIRIN [Concomitant]
     Indication: THROMBOSIS PROPHYLAXIS
     Dosage: 100 MG, UNK
     Route: 048
     Dates: start: 20100908
  12. ISODINE [Concomitant]
     Indication: INFECTION PROPHYLAXIS
     Dosage: UNK
     Dates: start: 20090514
  13. BASEN [Concomitant]
     Indication: GLUCOSE TOLERANCE IMPAIRED
     Dosage: 0.6 MG, UNK
     Dates: start: 20090721
  14. TAGAMET [Concomitant]
     Indication: PROPHYLAXIS AGAINST GASTROINTESTINAL ULCER
     Dosage: 200 MG, UNK
     Dates: start: 20090513
  15. ALOSENN [Concomitant]
     Indication: CONSTIPATION
     Dosage: 0.5 DF, UNK
     Route: 048
     Dates: start: 20090520
  16. DALACIN T [Concomitant]
     Indication: ACNE
     Dosage: UNK
     Route: 061
     Dates: start: 20090611
  17. MAGNESIUM OXIDE [Concomitant]
     Indication: CONSTIPATION
     Dosage: 4.5 MG, UNK
     Route: 048
     Dates: start: 20100302
  18. NITROGEN LIQUID [Concomitant]
     Indication: SKIN PAPILLOMA
     Dosage: UNK
     Route: 061
     Dates: start: 20091116
  19. KERATINAMIN [Concomitant]
     Indication: PALMOPLANTAR KERATODERMA
     Dosage: UNK
     Route: 062
     Dates: start: 20100511
  20. DIFFERIN [Concomitant]
     Indication: SKIN PAPILLOMA
     Dosage: UNK
     Route: 062
     Dates: start: 20101130

REACTIONS (6)
  - Interstitial lung disease [Recovering/Resolving]
  - Pyrexia [Recovering/Resolving]
  - Pneumocystis jirovecii pneumonia [Recovering/Resolving]
  - Pneumomediastinum [Recovered/Resolved]
  - Dyspnoea [Recovered/Resolved]
  - Cytomegalovirus infection [Recovering/Resolving]
